FAERS Safety Report 18095697 (Version 1)
Quarter: 2020Q3

REPORT INFORMATION
  Report Type: Spontaneous
  Country: US (occurrence: US)
  Receive Date: 20200730
  Receipt Date: 20200730
  Transmission Date: 20201103
  Serious: No
  Sender: FDA-Public Use
  Company Number: US-PFIZER INC-2014203271

PATIENT
  Age: 66 Year
  Sex: Female

DRUGS (58)
  1. PROAIR HFA [Concomitant]
     Active Substance: ALBUTEROL SULFATE
     Dosage: 2 DF, AS NEEDED (CFC FREE 90 MCG/LNH AEROSOL, 2 PUFF(S) INHALED 1?2 X/WK, PRIMARILY AT NIGHT, PRN)
     Route: 055
  2. VYTORIN [Concomitant]
     Active Substance: EZETIMIBE\SIMVASTATIN
     Dosage: 1 DF, 1X/DAY ((EZETIMIBE?10 MG?SIMVASTATIN?20MG)
     Route: 048
     Dates: start: 20120828
  3. NORCO [Concomitant]
     Active Substance: ACETAMINOPHEN\HYDROCODONE BITARTRATE
     Dosage: 1 DF, AS NEEDED(1 TAB(S) ORALLY 2 X/DAY PRN)
     Route: 048
     Dates: start: 20160520
  4. NEXIUM [Concomitant]
     Active Substance: ESOMEPRAZOLE MAGNESIUM
     Dosage: 40 MG, 1X/DAY (1 EA ORALLY ONCE A DAY)
     Route: 048
     Dates: start: 20140702
  5. COMBIVENT RESPIMAT [Concomitant]
     Active Substance: ALBUTEROL SULFATE\IPRATROPIUM BROMIDE
     Dosage: 1 DF, 4X/DAY (ALBUTEROL?100MCG?IPRATROPIUM?20MCG/INH)(1 PUFF(S) INHALED 4 TIMES A DAY, PRN)
     Dates: start: 20140417
  6. PROZAC [Concomitant]
     Active Substance: FLUOXETINE HYDROCHLORIDE
     Dosage: 20 MG, DAILY
     Route: 048
     Dates: start: 20140815
  7. ZOFRAN [Concomitant]
     Active Substance: ONDANSETRON HYDROCHLORIDE
     Dosage: 8 MG, 2X/DAY
     Route: 048
     Dates: start: 20160131
  8. TESSALON [Concomitant]
     Active Substance: BENZONATATE
     Dosage: 100 MG, 1X/DAY(1 CAP (S) ORALLY QHS)
     Route: 048
     Dates: start: 20160426
  9. TESSALON [Concomitant]
     Active Substance: BENZONATATE
     Dosage: 100 MG, 3X/DAY
     Route: 048
     Dates: start: 20170609
  10. LOVASTATIN. [Concomitant]
     Active Substance: LOVASTATIN
     Dosage: 20 MG, 1X/DAY
     Route: 048
     Dates: start: 20170609
  11. DOCULASE [Concomitant]
     Dosage: 100 MG, 2X/DAY
     Route: 048
  12. LISINOPRIL. [Concomitant]
     Active Substance: LISINOPRIL
     Dosage: 5 MG, 1X/DAY
     Route: 048
     Dates: start: 20160930
  13. COUMADIN [Concomitant]
     Active Substance: WARFARIN SODIUM
     Dosage: 1.5 DF, DAILY(5MG TABLET,1.5 TAB PO (PER ORAL) DAILY)
     Route: 048
  14. NORCO [Concomitant]
     Active Substance: ACETAMINOPHEN\HYDROCODONE BITARTRATE
     Dosage: 1 DF(1 TAB(S) ORALLY NO MORE THAN 3 A DAY)
     Route: 048
     Dates: start: 20170428
  15. EASPRIN [Concomitant]
     Active Substance: ASPIRIN
     Dosage: 81 MG, 1X/DAY
     Route: 048
     Dates: start: 20140903
  16. ESOMEPRAZOLE. [Concomitant]
     Active Substance: ESOMEPRAZOLE MAGNESIUM
     Dosage: 20 MG, 1X/DAY
     Route: 048
     Dates: start: 20170601
  17. LYRICA [Suspect]
     Active Substance: PREGABALIN
     Dosage: 100 MG, 3X/DAY
     Route: 048
     Dates: start: 20160112
  18. CHANTIX [Concomitant]
     Active Substance: VARENICLINE TARTRATE
     Dosage: UNK (STARTER PACK, USE AS DIRECTED)
  19. NEURONTIN [Concomitant]
     Active Substance: GABAPENTIN
     Dosage: 800 MG, 3X/DAY
     Route: 048
     Dates: start: 20120328
  20. PROAIR HFA [Concomitant]
     Active Substance: ALBUTEROL SULFATE
     Dosage: 2 DF, AS NEEDED (CFC FREE 90 MCG/LNH AEROSOL WITH ADAPTER, SIG: 2 PUFF(S) INHALED 3 ? X/WK, PRN)
     Route: 055
  21. TOPROL XL [Concomitant]
     Active Substance: METOPROLOL SUCCINATE
     Dosage: 50 MG, 1X/DAY
     Route: 048
     Dates: start: 20120719
  22. NORCO [Concomitant]
     Active Substance: ACETAMINOPHEN\HYDROCODONE BITARTRATE
     Dosage: 1 DF, 2X/DAY (ACETAMENOPHEN? 325 MG?HYDROCODONE?7.5MG)
     Route: 048
     Dates: start: 20150401
  23. PROZAC [Concomitant]
     Active Substance: FLUOXETINE HYDROCHLORIDE
     Dosage: 40 MG, 1X/DAY(1 TAB ORALLY QAM)
     Route: 048
     Dates: start: 20160112
  24. PEPCID [Concomitant]
     Active Substance: FAMOTIDINE
     Dosage: 20 MG, 2X/DAY(30 MIN BEFORE A MEAL)
     Route: 048
     Dates: start: 20160517
  25. ELIQUIS [Concomitant]
     Active Substance: APIXABAN
     Dosage: 5 MG, 2X/DAY
     Route: 048
  26. LYRICA [Suspect]
     Active Substance: PREGABALIN
     Indication: PAIN
     Dosage: 50 MG, 1X/DAY (FOR 2 D)
     Route: 048
  27. LYRICA [Suspect]
     Active Substance: PREGABALIN
     Dosage: 100 MG, 3X/DAY
     Route: 048
     Dates: start: 20140710
  28. COUMADIN [Concomitant]
     Active Substance: WARFARIN SODIUM
     Dosage: 5 MG (TAKE ONE TABLET AS DIRECTED ORALLY PO AS DIRECTED 4 TIMES A WEEK)
     Route: 048
  29. PRINIVIL [Concomitant]
     Active Substance: LISINOPRIL
     Dosage: 10 MG, 1X/DAY
     Route: 048
  30. OXYGEN. [Concomitant]
     Active Substance: OXYGEN
     Dosage: UNK, AS NEEDED (3 1PM AT NIGHT + PRN)
  31. DULERA [Concomitant]
     Active Substance: FORMOTEROL FUMARATE DIHYDRATE\MOMETASONE FUROATE
     Dosage: 2 DF, 2X/DAY (FORMOTEROL?5 MCG? MOMETASONE?200MCG/ 2 PUFF(S) INHALED 2 TIMES A DAY)
     Route: 055
  32. AVENTYL [Concomitant]
     Active Substance: NORTRIPTYLINE HYDROCHLORIDE
     Dosage: 25 MG, 3X/DAY
     Route: 048
     Dates: start: 20160531
  33. SPIRIVA [Concomitant]
     Active Substance: TIOTROPIUM BROMIDE MONOHYDRATE
     Dosage: 18 UG, 1X/DAY (1 EA INHALED ONCE A DAY)
  34. PRAVACOL [Concomitant]
     Active Substance: PRAVASTATIN SODIUM
     Dosage: 10 MG, DAILY
     Route: 048
     Dates: start: 20150109
  35. CYANOCOBALAMIN VIAL [Concomitant]
     Dosage: 1000 UG(1000MCG INTRAMUSCULARLY ONCE A MONTH)
     Route: 030
     Dates: start: 20170221
  36. BENADRYL [Concomitant]
     Active Substance: DIPHENHYDRAMINE HYDROCHLORIDE
     Dosage: 25 MG, 1X/DAY(25MG TABLET,1 TAB(S) ORALLY AT QHS)
     Route: 048
     Dates: start: 20170119
  37. LYRICA [Suspect]
     Active Substance: PREGABALIN
     Dosage: 50 MG, 2X/DAY (2X/D X 2D)
     Route: 048
  38. LYRICA [Suspect]
     Active Substance: PREGABALIN
     Dosage: 200 MG, DAILY (2 CAPS QAM, 1 CAP QPM AND QHS X 2D)
     Route: 048
  39. COUMADIN [Concomitant]
     Active Substance: WARFARIN SODIUM
     Dosage: 7.5 MG, (REST OF THE WEEK)
     Route: 048
  40. TOPAMAX [Concomitant]
     Active Substance: TOPIRAMATE
     Dosage: 100 MG, 1X/DAY (QHS)
     Route: 048
  41. ANEXSIA [Concomitant]
     Active Substance: ACETAMINOPHEN\HYDROCODONE BITARTRATE
     Dosage: 1 DF, 4X/DAY (HYDROCODONE BITARTRATE? 7.5 MG, PARACETAMOL? 325 MG, EVERY 6 HOURS )
     Route: 048
     Dates: start: 20131231
  42. KLONOPIN [Concomitant]
     Active Substance: CLONAZEPAM
     Dosage: 0.5 MG, UNK (1 TAB ORALLY 1?2 X/WK)
     Route: 048
     Dates: start: 20140903
  43. TOPAMAX [Concomitant]
     Active Substance: TOPIRAMATE
     Dosage: 100 MG, DAILY
     Route: 048
  44. ZANAFLEX [Concomitant]
     Active Substance: TIZANIDINE HYDROCHLORIDE
     Dosage: 4 MG, 3X/DAY
     Route: 048
     Dates: start: 20130517
  45. NORCO [Concomitant]
     Active Substance: ACETAMINOPHEN\HYDROCODONE BITARTRATE
     Dosage: 1 DF, UNK (ACETAMENOPHEN? 325 MG?HYDROCODONE?7.5MG) (2?3X/DAY)
     Route: 048
     Dates: start: 20140702
  46. PEPCID [Concomitant]
     Active Substance: FAMOTIDINE
     Dosage: 40 MG, 2X/DAY
     Route: 048
     Dates: start: 20160708
  47. LEXAPRO [Concomitant]
     Active Substance: ESCITALOPRAM OXALATE
     Dosage: 10 MG, 1X/DAY(2 TAB (S) ORALLY ONCE A DAY)
     Route: 048
     Dates: start: 20160412
  48. TUMS [Concomitant]
     Active Substance: CALCIUM CARBONATE
     Dosage: 500 MG, 1X/DAY
  49. OMEPRAZOLE. [Concomitant]
     Active Substance: OMEPRAZOLE
     Dosage: 20 MG, 1X/DAY
     Route: 048
     Dates: start: 20170602
  50. LYRICA [Suspect]
     Active Substance: PREGABALIN
     Dosage: 50 MG, 3X/DAY (3X/D X 2D)
     Route: 048
  51. LYRICA [Suspect]
     Active Substance: PREGABALIN
     Dosage: 250 MG, DAILY (2 CAPS QAM + QPM + 1 CAP QHS X 2D)
     Route: 048
  52. LYRICA [Suspect]
     Active Substance: PREGABALIN
     Dosage: 100 MG, 3X/DAY
     Route: 048
     Dates: start: 20160620
  53. CHANTIX [Concomitant]
     Active Substance: VARENICLINE TARTRATE
     Dosage: 1 MG, 2X/DAY (1TAB, PO, BID )
     Route: 048
  54. VESICARE [Concomitant]
     Active Substance: SOLIFENACIN SUCCINATE
     Dosage: 10 MG, 1X/DAY
     Route: 048
     Dates: start: 20131003
  55. KLONOPIN [Concomitant]
     Active Substance: CLONAZEPAM
     Dosage: 0.25 MG, 2X/DAY (0.5 MG; 1/2 TAB ORALLY BID)
     Route: 048
     Dates: start: 20140127
  56. PROZAC [Concomitant]
     Active Substance: FLUOXETINE HYDROCHLORIDE
     Dosage: UNK
     Route: 048
  57. NEXIUM [Concomitant]
     Active Substance: ESOMEPRAZOLE MAGNESIUM
     Dosage: 40 MG, 2X/DAY (1 EA ORALLY BID)
     Route: 048
     Dates: start: 20140702
  58. ZYRTEC [Concomitant]
     Active Substance: CETIRIZINE HYDROCHLORIDE
     Dosage: 10 MG, 1X/DAY
     Route: 048
     Dates: start: 20151002

REACTIONS (1)
  - Dyspnoea [Unknown]
